FAERS Safety Report 5045370-9 (Version None)
Quarter: 2006Q3

REPORT INFORMATION
  Report Type: 
  Country: None (occurrence: None)
  Receive Date: 20060707
  Receipt Date: 20060526
  Transmission Date: 20061208
  Serious: No
  Sender: FDA-Public Use
  Company Number: US-GLAXOSMITHKLINE-A0607083A

PATIENT
  Sex: Female

DRUGS (2)
  1. LOTRONEX [Suspect]
     Indication: IRRITABLE BOWEL SYNDROME
     Dosage: 1MG PER DAY
     Route: 048
  2. SYNTHROID [Concomitant]

REACTIONS (1)
  - DRY MOUTH [None]
